FAERS Safety Report 6110706-4 (Version None)
Quarter: 2009Q1

REPORT INFORMATION
  Report Type: 
  Country: None (occurrence: None)
  Receive Date: 20090309
  Receipt Date: 20090225
  Transmission Date: 20090719
  Serious: Yes (Hospitalization)
  Sender: FDA-Public Use
  Company Number: DAV-AE-MTX-09-016

PATIENT
  Age: 12 Year
  Sex: Male

DRUGS (5)
  1. METHOTREXATE [Suspect]
     Indication: COGAN'S SYNDROME
     Dosage: 5 MG/WK
  2. METHYLPREDNISOLONE 4MG TAB [Concomitant]
  3. OPHTHALMC STEROID PREDNISOLONE [Concomitant]
  4. ORAL STEROID   PREDNISONE [Concomitant]
  5. SUBCONJUNCTIVAL TRIAMCINOLONE [Concomitant]

REACTIONS (9)
  - CATARACT [None]
  - DEAFNESS BILATERAL [None]
  - DEAFNESS NEUROSENSORY [None]
  - DISEASE PROGRESSION [None]
  - IRIS ADHESIONS [None]
  - PUPILS UNEQUAL [None]
  - TINNITUS [None]
  - VISUAL IMPAIRMENT [None]
  - VITRITIS [None]
